FAERS Safety Report 11138926 (Version 1)
Quarter: 2015Q2

REPORT INFORMATION
  Report Type: Spontaneous
  Country: CA (occurrence: CA)
  Receive Date: 20150527
  Receipt Date: 20150527
  Transmission Date: 20150821
  Serious: Yes (Hospitalization)
  Sender: FDA-Public Use
  Company Number: CA-TEVA-565494ACC

PATIENT
  Age: 34 Year
  Sex: Female
  Weight: 74 kg

DRUGS (2)
  1. PENICILLIN G SODIUM FOR INJECTION, USP [Suspect]
     Active Substance: PENICILLIN G SODIUM
     Indication: ANTIBIOTIC PROPHYLAXIS
     Route: 042
  2. PRENATAL MULTIPLE VITAMIN [Concomitant]

REACTIONS (9)
  - Swollen tongue [Recovered/Resolved]
  - Swelling [Recovered/Resolved]
  - Eye swelling [Recovered/Resolved]
  - Maternal distress during labour [Recovered/Resolved]
  - Abdominal rigidity [Recovered/Resolved]
  - Meconium in amniotic fluid [Recovered/Resolved]
  - Pain [Recovered/Resolved]
  - Lip swelling [Recovered/Resolved]
  - Pruritus [Recovered/Resolved]
